FAERS Safety Report 19521696 (Version 2)
Quarter: 2021Q3

REPORT INFORMATION
  Report Type: Spontaneous
  Country: PT (occurrence: PT)
  Receive Date: 20210713
  Receipt Date: 20210809
  Transmission Date: 20211014
  Serious: Yes (Hospitalization, Other)
  Sender: FDA-Public Use
  Company Number: PT-AUROBINDO-AUR-APL-2021-029035

PATIENT
  Age: 33 Year
  Sex: Male

DRUGS (5)
  1. LORAZEPAM. [Suspect]
     Active Substance: LORAZEPAM
     Dosage: 5 MILLIGRAM
     Route: 065
     Dates: start: 2017
  2. ZOTEPINE [Suspect]
     Active Substance: ZOTEPINE
     Indication: SCHIZOPHRENIA
     Dosage: 150 MILLIGRAM
     Route: 065
     Dates: start: 2017
  3. LORAZEPAM. [Suspect]
     Active Substance: LORAZEPAM
     Indication: SCHIZOPHRENIA
     Dosage: 2.5 MILLIGRAM
     Route: 065
     Dates: start: 2008
  4. HALDOL DECANOATO [Suspect]
     Active Substance: HALOPERIDOL DECANOATE
     Indication: SCHIZOPHRENIA
     Dosage: 100 MILLIGRAM, EVERY MONTH
     Route: 065
     Dates: start: 2008
  5. HALDOL DECANOATO [Suspect]
     Active Substance: HALOPERIDOL DECANOATE
     Dosage: 100 MILLIGRAM, EVERY MONTH
     Route: 065
     Dates: start: 2017

REACTIONS (4)
  - Hallucination [Unknown]
  - Thinking abnormal [Unknown]
  - Abnormal behaviour [Unknown]
  - Speech disorder [Unknown]

NARRATIVE: CASE EVENT DATE: 20170126
